FAERS Safety Report 8559616 (Version 3)
Quarter: 2013Q2

REPORT INFORMATION
  Report Type: Spontaneous
  Country: US (occurrence: US)
  Receive Date: 20120514
  Receipt Date: 20130603
  Transmission Date: 20140414
  Serious: Yes (Other)
  Sender: FDA-Public Use
  Company Number: US-BAYER-2012-045470

PATIENT
  Age: 41 Year
  Sex: Female

DRUGS (4)
  1. MIRENA [Suspect]
     Indication: MENORRHAGIA
     Dosage: 20 ?G/D, CONT
     Route: 015
     Dates: start: 20120418
  2. MIRENA [Suspect]
     Indication: MENSTRUAL DISORDER
  3. IRON [Concomitant]
     Indication: HAEMORRHAGE
     Dosage: 18 MG, PRN
  4. NAPROXEN [Concomitant]
     Indication: DYSMENORRHOEA
     Dosage: 200 MG, PRN

REACTIONS (9)
  - Genital haemorrhage [Not Recovered/Not Resolved]
  - Metrorrhagia [None]
  - Polymenorrhoea [None]
  - Benign renal neoplasm [None]
  - Autoimmune disorder [None]
  - Burning sensation [None]
  - Flank pain [None]
  - Rash macular [None]
  - Joint swelling [None]
